FAERS Safety Report 13890700 (Version 3)
Quarter: 2017Q3

REPORT INFORMATION
  Report Type: Spontaneous
  Country: TW (occurrence: TW)
  Receive Date: 20170822
  Receipt Date: 20170831
  Transmission Date: 20171127
  Serious: Yes (Death, Hospitalization)
  Sender: FDA-Public Use
  Company Number: TW-ABBVIE-17P-153-2075715-00

PATIENT

DRUGS (2)
  1. VIEKIRAX [Suspect]
     Active Substance: OMBITASVIR\PARITAPREVIR\RITONAVIR
     Indication: HEPATITIS C
     Route: 048
  2. EXVIERA [Suspect]
     Active Substance: DASABUVIR
     Indication: HEPATITIS C
     Route: 048

REACTIONS (2)
  - Death [Fatal]
  - Haemorrhagic stroke [Unknown]

NARRATIVE: CASE EVENT DATE: 20170825
